FAERS Safety Report 7289959-5 (Version None)
Quarter: 2011Q1

REPORT INFORMATION
  Report Type: 
  Country: None (occurrence: None)
  Receive Date: 20110214
  Receipt Date: 20110203
  Transmission Date: 20110831
  Serious: Yes (Hospitalization)
  Sender: FDA-Public Use
  Company Number: ES-ELI_LILLY_AND_COMPANY-ES201102000838

PATIENT
  Sex: Female

DRUGS (4)
  1. FORTEO [Suspect]
     Indication: OSTEOPOROSIS
     Dosage: 20 UG, DAILY (1/D)
     Route: 058
     Dates: start: 20100430
  2. AREMIS [Concomitant]
     Indication: DEPRESSION
     Dosage: 50 MG, DAILY (1/D)
     Route: 048
  3. TRANXILIUM [Concomitant]
     Indication: DEPRESSION
     Dosage: 5 MG, 2/D
     Route: 048
  4. NOLOTIL [Concomitant]
     Dosage: 1 D/F, EVERY 6 HRS
     Route: 048

REACTIONS (1)
  - MENTAL DISORDER [None]
